FAERS Safety Report 8429894-X (Version None)
Quarter: 2012Q2

REPORT INFORMATION
  Report Type: 
  Country: None (occurrence: None)
  Receive Date: 20120612
  Receipt Date: 20120530
  Transmission Date: 20120825
  Serious: No
  Sender: FDA-Public Use
  Company Number: US-ASTRAZENECA-2012SE35701

PATIENT
  Age: 52 Year
  Sex: Male
  Weight: 95.3 kg

DRUGS (6)
  1. PREDNISONE TAB [Concomitant]
     Indication: ALLERGIC GRANULOMATOUS ANGIITIS
     Route: 048
  2. SYMBICORT [Suspect]
     Dosage: 160 MCG WO PUFFS TWO TIMES A DAY
     Route: 055
     Dates: start: 20110101
  3. PROAIR HFA [Concomitant]
     Indication: ASTHMA
     Dosage: AS REQUIRED
     Route: 055
  4. ATROVENT [Concomitant]
     Indication: ASTHMA
     Dosage: AS REQUIRED
     Route: 055
  5. SYMBICORT [Suspect]
     Indication: ASTHMA
     Dosage: 160 MCG ONE PUFF TWO TIMES A DAY
     Route: 055
  6. ALBUTEROL [Concomitant]
     Indication: ASTHMA
     Dosage: AS REQUIRED
     Route: 055

REACTIONS (5)
  - DRUG EFFECT DELAYED [None]
  - RESPIRATORY TRACT CONGESTION [None]
  - DYSPNOEA [None]
  - MALAISE [None]
  - OFF LABEL USE [None]
